FAERS Safety Report 5075428-X (Version None)
Quarter: 2006Q3

REPORT INFORMATION
  Report Type: 
  Country: None (occurrence: None)
  Receive Date: 20060714
  Receipt Date: 20060315
  Transmission Date: 20061208
  Serious: No
  Sender: FDA-Public Use
  Company Number: 2006SP001250

PATIENT
  Age: 65 Year
  Sex: Male

DRUGS (5)
  1. LUNESTA [Suspect]
     Indication: INSOMNIA
     Dosage: 3 MG;HS;ORAL
     Route: 048
     Dates: start: 20060201, end: 20060201
  2. NEXIUM [Concomitant]
  3. SIMVASTATIN [Concomitant]
  4. TRAMADOL HCL [Concomitant]
  5. AMBIEN [Concomitant]

REACTIONS (10)
  - AMNESIA [None]
  - ANGER [None]
  - BALANCE DISORDER [None]
  - COLD SWEAT [None]
  - CONFUSIONAL STATE [None]
  - FLASHBACK [None]
  - INSOMNIA [None]
  - MIGRAINE [None]
  - PYREXIA [None]
  - SOMNOLENCE [None]
